FAERS Safety Report 9321580 (Version 1)
Quarter: 2013Q2

REPORT INFORMATION
  Report Type: Spontaneous
  Country: DE (occurrence: DE)
  Receive Date: 20130531
  Receipt Date: 20130531
  Transmission Date: 20140414
  Serious: Yes (Life-Threatening)
  Sender: FDA-Public Use
  Company Number: DE-B.I. PHARMACEUTICALS,INC./RIDGEFIELD-2013-DE-01485DE

PATIENT
  Age: 84 Year
  Sex: Male

DRUGS (10)
  1. PRADAXA [Suspect]
     Indication: ATRIAL FIBRILLATION
     Dosage: 220 MG
  2. ALLOPURINOL [Concomitant]
  3. AMLODIPIN [Concomitant]
  4. LITALIER [Concomitant]
  5. MOXOLIDIN [Concomitant]
  6. NEBIVILOL [Concomitant]
  7. PANTOZOL [Concomitant]
  8. PARVASTATIN [Concomitant]
  9. TOREM SPASMOLYT [Concomitant]
  10. VASLAXAT [Concomitant]

REACTIONS (1)
  - Cerebellar infarction [Unknown]
